FAERS Safety Report 9435890 (Version 2)
Quarter: 2013Q4

REPORT INFORMATION
  Report Type: Spontaneous
  Country: CA (occurrence: CA)
  Receive Date: 20130801
  Receipt Date: 20131023
  Transmission Date: 20140711
  Serious: Yes (Death, Hospitalization, Other)
  Sender: FDA-Public Use
  Company Number: CA-VERTEX PHARMACEUTICALS INC-2013-008443

PATIENT
  Age: 63 Year
  Sex: Male
  Weight: 97 kg

DRUGS (13)
  1. INCIVEK [Suspect]
     Indication: HEPATITIS C
     Dosage: 650 MG, TID
  2. RIBAVIRIN [Suspect]
     Indication: HEPATITIS C
     Dosage: 2 DOSAGE FORMS
     Route: 048
  3. RIBAVIRIN [Suspect]
     Dosage: 1 DOSEAGE FORM, QD
     Route: 048
  4. RIBAVIRIN [Suspect]
     Dosage: 800 MG, BID
     Route: 048
  5. RIBAVIRIN [Suspect]
     Dosage: 3 DOSAGE FORMS, UNK
     Route: 048
  6. RIBAVIRIN [Suspect]
     Dosage: 200 MG, UNK
  7. PEGASYS [Suspect]
     Indication: HEPATITIS C
     Dosage: 90 ?G, QW
     Route: 058
  8. PEGASYS [Suspect]
     Dosage: 90 ?G, QW
     Route: 058
  9. PEGASYS [Suspect]
     Dosage: 180 ?G, QW
     Route: 058
  10. PEGASYS [Suspect]
     Dosage: 180 ?G, QW
     Route: 058
  11. ASPIRIN [Concomitant]
  12. AVALIDE [Concomitant]
  13. IMOVANE [Concomitant]

REACTIONS (11)
  - Abdominal wall abscess [Fatal]
  - Ascites [Fatal]
  - Cyst [Fatal]
  - Pleural effusion [Fatal]
  - Respiratory tract congestion [Fatal]
  - Infection [Fatal]
  - Hepatic failure [Fatal]
  - Renal failure [Fatal]
  - Anaemia [Fatal]
  - Platelet count decreased [Fatal]
  - Anaemia [Fatal]
